FAERS Safety Report 5714765-X (Version None)
Quarter: 2008Q2

REPORT INFORMATION
  Report Type: 
  Country: None (occurrence: None)
  Receive Date: 20080423
  Receipt Date: 20080418
  Transmission Date: 20081010
  Serious: Yes (Hospitalization)
  Sender: FDA-Public Use
  Company Number: JP-ASTRAZENECA-2008AP02895

PATIENT
  Age: 80 Year
  Sex: Female

DRUGS (6)
  1. CRESTOR [Suspect]
     Indication: HYPERCHOLESTEROLAEMIA
     Route: 048
     Dates: start: 20080407, end: 20080416
  2. ASPIRIN [Concomitant]
     Dosage: DOSE UNKNOWN
     Route: 048
  3. PLAVIX [Concomitant]
     Dosage: DOSE UNKNOWN
     Route: 048
  4. OMEPRAL [Concomitant]
     Dosage: DOSE UNKNOWN
     Route: 048
  5. ADALAT [Concomitant]
     Dosage: DOSE UNKNOWN
     Route: 048
  6. ENALAPRIL MALEATE [Concomitant]
     Dosage: DOSE UNKNOWN
     Route: 048

REACTIONS (2)
  - PERICARDITIS [None]
  - PLEURISY [None]
